FAERS Safety Report 7793248-X (Version None)
Quarter: 2011Q4

REPORT INFORMATION
  Report Type: 
  Country: None (occurrence: None)
  Receive Date: 20111003
  Receipt Date: 20110920
  Transmission Date: 20120403
  Serious: Yes (Other)
  Sender: FDA-Public Use
  Company Number: US-BAYER-2011-014918

PATIENT
  Age: 29 Year
  Sex: Female
  Weight: 63.492 kg

DRUGS (1)
  1. YAZ [Suspect]
     Indication: CONTRACEPTION
     Dosage: UNK
     Dates: start: 20080325, end: 20090201

REACTIONS (7)
  - WALKING DISABILITY [None]
  - CEREBRAL INFARCTION [None]
  - DIPLOPIA [None]
  - DISABILITY [None]
  - CEREBROVASCULAR ACCIDENT [None]
  - PAIN [None]
  - VISION BLURRED [None]
